FAERS Safety Report 7303113-X (Version None)
Quarter: 2011Q1

REPORT INFORMATION
  Report Type: 
  Country: None (occurrence: None)
  Receive Date: 20110221
  Receipt Date: 20110209
  Transmission Date: 20110831
  Serious: Yes (Hospitalization)
  Sender: FDA-Public Use
  Company Number: US-BIOGENIDEC-2011BI003178

PATIENT
  Age: 65 Year
  Sex: Male
  Weight: 117 kg

DRUGS (1)
  1. TYSABRI [Suspect]
     Indication: MULTIPLE SCLEROSIS
     Route: 042
     Dates: start: 20090924

REACTIONS (5)
  - KIDNEY INFECTION [None]
  - HEADACHE [None]
  - FALL [None]
  - DIZZINESS [None]
  - JOINT SPRAIN [None]
